FAERS Safety Report 10253122 (Version 1)
Quarter: 2014Q2

REPORT INFORMATION
  Report Type: Spontaneous
  Country: US (occurrence: US)
  Receive Date: 20140623
  Receipt Date: 20140623
  Transmission Date: 20141212
  Serious: No
  Sender: FDA-Public Use
  Company Number: US-ZOGENIX, INC.-2011ZX000414

PATIENT
  Age: 46 Year
  Sex: Female
  Weight: 59.93 kg

DRUGS (8)
  1. SUMAVEL DOSEPRO [Suspect]
     Indication: MIGRAINE
     Dates: start: 20110812
  2. ADIPEX                             /00131701/ [Concomitant]
     Indication: WEIGHT DECREASED
  3. SYNTHROID [Concomitant]
     Indication: THYROID DISORDER
     Route: 048
  4. XYZAL [Concomitant]
     Indication: HYPERSENSITIVITY
  5. OMNARIS [Concomitant]
     Indication: HYPERSENSITIVITY
  6. 6-MP [Concomitant]
     Indication: CROHN^S DISEASE
  7. ASACOL [Concomitant]
     Indication: PRODUCT USED FOR UNKNOWN INDICATION
  8. PATANASE [Concomitant]
     Indication: HYPERSENSITIVITY

REACTIONS (5)
  - Pregnancy [Unknown]
  - Abdominal pain [Recovered/Resolved]
  - Diarrhoea [Recovered/Resolved]
  - Vomiting [Recovered/Resolved]
  - Drug effect incomplete [Recovering/Resolving]
